APPROVED DRUG PRODUCT: TRYVIO
Active Ingredient: APROCITENTAN
Strength: 12.5MG
Dosage Form/Route: TABLET;ORAL
Application: N217686 | Product #001
Applicant: IDORSIA PHARMACEUTICALS LTD
Approved: Mar 19, 2024 | RLD: Yes | RS: Yes | Type: RX

PATENTS:
Patent 11787782 | Expires: Mar 2, 2038
Patent 11680058 | Expires: Jul 26, 2038
Patent 11174247 | Expires: Nov 6, 2037
Patent 8324232 | Expires: Sep 21, 2029
Patent 12297189 | Expires: Feb 26, 2038
Patent 10919881 | Expires: Feb 26, 2038

EXCLUSIVITY:
Code: NCE | Date: Mar 22, 2029